FAERS Safety Report 11180561 (Version 12)
Quarter: 2017Q1

REPORT INFORMATION
  Report Type: Spontaneous
  Country: US (occurrence: US)
  Receive Date: 20150611
  Receipt Date: 20170321
  Transmission Date: 20170428
  Serious: Yes (Other)
  Sender: FDA-Public Use
  Company Number: US-PFIZER INC-2015192738

PATIENT
  Age: 87 Year
  Sex: Female
  Weight: 93 kg

DRUGS (10)
  1. IBRANCE [Suspect]
     Active Substance: PALBOCICLIB
     Dosage: 75 MG, CYCLIC (DAYS 1-21 Q28 DAYS)
     Route: 048
     Dates: start: 20150520
  2. IBRANCE [Suspect]
     Active Substance: PALBOCICLIB
     Dosage: 75 MG, CYCLIC (D1-D14Q 21 DAYS)
     Route: 048
     Dates: start: 20150520, end: 20170104
  3. IBRANCE [Suspect]
     Active Substance: PALBOCICLIB
     Dosage: 75 MG, CYCLIC (14 DAYS ON AND 7 DAYS OFF)
     Route: 048
     Dates: start: 2015
  4. IBRANCE [Suspect]
     Active Substance: PALBOCICLIB
     Dosage: 75 MG, CYCLIC (DAY 1-14 Q 21 DAYS)
     Route: 048
  5. IBRANCE [Suspect]
     Active Substance: PALBOCICLIB
     Dosage: 75 MG, CYCLIC (1CAP D1-D14 Q 21D)
     Route: 048
  6. IBRANCE [Suspect]
     Active Substance: PALBOCICLIB
     Indication: BREAST CANCER METASTATIC
     Dosage: 125 MG, 1X/DAY
     Route: 048
     Dates: start: 20150520, end: 2015
  7. IBRANCE [Suspect]
     Active Substance: PALBOCICLIB
     Dosage: 75 MG, CYCLIC (DAY 1-14 Q 21 DAYS)
     Route: 048
     Dates: start: 20150520
  8. IBRANCE [Suspect]
     Active Substance: PALBOCICLIB
     Dosage: 75 MG, CYCLIC (DAYS 1-21 Q28 DAYS)
     Route: 048
     Dates: start: 20150520
  9. IBRANCE [Suspect]
     Active Substance: PALBOCICLIB
     Dosage: 75 MG, CYCLIC (D1-D14Q 21 DAYS)
     Route: 048
     Dates: start: 20150520
  10. FUROSEMIDE. [Concomitant]
     Active Substance: FUROSEMIDE
     Dosage: 10 MG, UNK

REACTIONS (39)
  - Hypoaesthesia [Unknown]
  - Blister [Recovered/Resolved]
  - Gastrointestinal disorder [Unknown]
  - Arthropod bite [Recovered/Resolved]
  - Incontinence [Unknown]
  - Chest discomfort [Unknown]
  - Gastroenteritis viral [Unknown]
  - Pneumonia [Unknown]
  - Laboratory test abnormal [Unknown]
  - Cough [Unknown]
  - Bronchitis [Unknown]
  - Cardiac disorder [Unknown]
  - White blood cell count decreased [Unknown]
  - Diarrhoea [Unknown]
  - Urine output decreased [Unknown]
  - Haemoptysis [Unknown]
  - Dyspepsia [Not Recovered/Not Resolved]
  - Oropharyngeal pain [Not Recovered/Not Resolved]
  - Urinary tract infection [Unknown]
  - Vomiting [Unknown]
  - Dysgeusia [Unknown]
  - Abdominal discomfort [Not Recovered/Not Resolved]
  - Blood pressure increased [Unknown]
  - Blood pressure fluctuation [Unknown]
  - Nausea [Unknown]
  - Red blood cell count decreased [Unknown]
  - Abdominal distension [Unknown]
  - Pollakiuria [Unknown]
  - Renal impairment [Unknown]
  - Angina pectoris [Unknown]
  - Paraesthesia [Unknown]
  - Flatulence [Unknown]
  - Candida infection [Unknown]
  - Cardiac failure congestive [Unknown]
  - Fatigue [Unknown]
  - Dysuria [Unknown]
  - Peripheral swelling [Unknown]
  - Constipation [Unknown]
  - Osteoarthritis [Unknown]

NARRATIVE: CASE EVENT DATE: 20150604
